FAERS Safety Report 9045090 (Version 1)
Quarter: 2013Q1

REPORT INFORMATION
  Report Type: Report from Study
  Country: US (occurrence: US)
  Receive Date: 20130130
  Receipt Date: 20130130
  Transmission Date: 20140127
  Serious: No
  Sender: FDA-Public Use
  Company Number: US-ABBOTT-12P-163-0962270-00

PATIENT
  Age: 61 Year
  Sex: Female

DRUGS (9)
  1. HUMIRA 40 MG/0.8 ML PEN [Suspect]
     Indication: CROHN^S DISEASE
     Dates: start: 20120510
  2. TRAMADOL [Concomitant]
     Indication: PRODUCT USED FOR UNKNOWN INDICATION
  3. LOMOTIL [Concomitant]
     Indication: PRODUCT USED FOR UNKNOWN INDICATION
     Dosage: FOUR TIMES DAILY (NOT SURE OF DOSE)
  4. VITAMIN D2 [Concomitant]
     Indication: PRODUCT USED FOR UNKNOWN INDICATION
  5. IMURAN [Concomitant]
     Indication: PRODUCT USED FOR UNKNOWN INDICATION
     Dosage: 50 MG, 2 AT BEDTIME
  6. CIPRO [Concomitant]
     Indication: PRODUCT USED FOR UNKNOWN INDICATION
  7. TUMS [Concomitant]
     Indication: PRODUCT USED FOR UNKNOWN INDICATION
  8. ZEGERID [Concomitant]
     Indication: PRODUCT USED FOR UNKNOWN INDICATION
  9. PROVENTIL [Concomitant]
     Indication: PRODUCT USED FOR UNKNOWN INDICATION

REACTIONS (3)
  - Increased appetite [Not Recovered/Not Resolved]
  - Weight increased [Unknown]
  - Hunger [Unknown]
